FAERS Safety Report 20562326 (Version 1)
Quarter: 2022Q1

REPORT INFORMATION
  Report Type: Spontaneous
  Country: CN (occurrence: CN)
  Receive Date: 20220307
  Receipt Date: 20220307
  Transmission Date: 20220423
  Serious: Yes (Other)
  Sender: FDA-Public Use
  Company Number: CN-ABBVIE-22K-035-4298678-00

PATIENT
  Age: 17 Month
  Weight: 10.5 kg

DRUGS (3)
  1. VALPROATE SODIUM [Suspect]
     Active Substance: VALPROATE SODIUM
     Indication: Epilepsy
     Route: 048
     Dates: start: 20190801, end: 20190815
  2. VALPROATE SODIUM [Suspect]
     Active Substance: VALPROATE SODIUM
     Route: 048
     Dates: start: 20190816, end: 20190912
  3. VALPROATE SODIUM [Suspect]
     Active Substance: VALPROATE SODIUM
     Route: 048
     Dates: start: 20190913

REACTIONS (5)
  - Feeling abnormal [Recovered/Resolved]
  - Drooling [Recovered/Resolved]
  - Epilepsy [Recovered/Resolved]
  - Asthenia [Recovered/Resolved]
  - Polydipsia [Recovering/Resolving]

NARRATIVE: CASE EVENT DATE: 20190801
